FAERS Safety Report 6290804-5 (Version None)
Quarter: 2009Q3

REPORT INFORMATION
  Report Type: 
  Country: None (occurrence: None)
  Receive Date: 20090730
  Receipt Date: 20090720
  Transmission Date: 20100115
  Serious: Yes (Life-Threatening, Hospitalization)
  Sender: FDA-Public Use
  Company Number: FR-NOVOPROD-289594

PATIENT
  Age: 35 Year
  Sex: Male

DRUGS (11)
  1. NOVOMIX 30 FLEXPEN [Suspect]
     Indication: TYPE 1 DIABETES MELLITUS
     Dosage: UNK, PRN
     Route: 058
     Dates: end: 20090508
  2. DI-ANTALVIC                        /00016701/ [Concomitant]
     Dosage: 6 DF, QD
     Route: 048
     Dates: start: 20090107, end: 20090514
  3. DEPAKOTE [Concomitant]
     Indication: AFFECTIVE DISORDER
     Dosage: 1500 MG, QD
     Route: 048
     Dates: start: 20090428
  4. DEROXAT [Concomitant]
     Indication: DEPRESSION
     Dosage: 20 MG, QD
     Route: 048
     Dates: start: 20090212
  5. ZYPREXA [Concomitant]
     Indication: ABNORMAL BEHAVIOUR
     Dosage: 20 MG, QD
     Route: 048
     Dates: start: 20090428
  6. TERCIAN                            /00759301/ [Concomitant]
     Dosage: 225 MG, QD
     Route: 048
     Dates: start: 20090309
  7. RIVOTRIL [Concomitant]
     Dosage: 15 UNK, QD
     Route: 048
     Dates: start: 20090409
  8. HEPT A MYL [Concomitant]
     Indication: ORTHOSTATIC HYPOTENSION
     Dosage: 90 UNK, QD
  9. LEPTICUR [Concomitant]
     Indication: PARKINSONISM
     Dosage: 10 MG, QD
     Route: 048
  10. LANSOYL                            /00103901/ [Concomitant]
     Indication: CONSTIPATION
     Dosage: 1 DF, QD
     Route: 048
  11. LEVEMIR [Concomitant]
     Dates: start: 20090527

REACTIONS (7)
  - BLOOD GLUCOSE FLUCTUATION [None]
  - HYPERGLYCAEMIA [None]
  - HYPOGLYCAEMIA [None]
  - HYPOGLYCAEMIC COMA [None]
  - INFLAMMATION OF WOUND [None]
  - INJURY [None]
  - LUNG DISORDER [None]
